FAERS Safety Report 16856002 (Version 2)
Quarter: 2020Q3

REPORT INFORMATION
  Report Type: Spontaneous
  Country: US (occurrence: US)
  Receive Date: 20190926
  Receipt Date: 20200820
  Transmission Date: 20201102
  Serious: Yes (Other)
  Sender: FDA-Public Use
  Company Number: US-GILEAD-2019-0429234

PATIENT
  Age: 46 Year
  Sex: Male
  Weight: 57.6 kg

DRUGS (9)
  1. IBUPROFEN. [Concomitant]
     Active Substance: IBUPROFEN
  2. CELEBREX [Concomitant]
     Active Substance: CELECOXIB
  3. TRAMADOL. [Concomitant]
     Active Substance: TRAMADOL
  4. NAPROXEN. [Concomitant]
     Active Substance: NAPROXEN
  5. NORVIR [Concomitant]
     Active Substance: RITONAVIR
  6. VENTOLIN HFA [Concomitant]
     Active Substance: ALBUTEROL SULFATE
     Indication: ASTHMA
  7. LEXIVA [Concomitant]
     Active Substance: FOSAMPRENAVIR CALCIUM
  8. TRUVADA [Suspect]
     Active Substance: EMTRICITABINE\TENOFOVIR DISOPROXIL FUMARATE
     Indication: HIV INFECTION
     Dosage: UNK
     Route: 048
     Dates: start: 20120405, end: 20180612
  9. PERCOCET [OXYCODONE HYDROCHLORIDE;OXYCODONE TEREPHTHALATE;PARACETAMOL] [Concomitant]
     Active Substance: ACETAMINOPHEN\OXYCODONE HYDROCHLORIDE\OXYCODONE TEREPHTHALATE

REACTIONS (15)
  - Pain [Not Recovered/Not Resolved]
  - Lower limb fracture [Unknown]
  - Emotional distress [Not Recovered/Not Resolved]
  - Upper limb fracture [Unknown]
  - Anxiety [Not Recovered/Not Resolved]
  - Hip fracture [Unknown]
  - Quality of life decreased [Not Recovered/Not Resolved]
  - Depression [Not Recovered/Not Resolved]
  - Clavicle fracture [Unknown]
  - Loss of personal independence in daily activities [Not Recovered/Not Resolved]
  - Anhedonia [Not Recovered/Not Resolved]
  - Osteoporosis [Not Recovered/Not Resolved]
  - Hand fracture [Unknown]
  - Fear-related avoidance of activities [Not Recovered/Not Resolved]
  - Economic problem [Not Recovered/Not Resolved]

NARRATIVE: CASE EVENT DATE: 201405
